FAERS Safety Report 13042763 (Version 1)
Quarter: 2016Q4

REPORT INFORMATION
  Report Type: Spontaneous
  Country: US (occurrence: US)
  Receive Date: 20161219
  Receipt Date: 20161219
  Transmission Date: 20170207
  Serious: No
  Sender: FDA-Public Use
  Company Number: US-GLAXOSMITHKLINE-US2016187109

PATIENT
  Sex: Female

DRUGS (1)
  1. VENTOLIN HFA [Suspect]
     Active Substance: ALBUTEROL SULFATE
     Indication: HYPERSENSITIVITY
     Dosage: 2 PUFF(S), PRN
     Route: 055

REACTIONS (5)
  - Dyspnoea [Unknown]
  - Device use error [Unknown]
  - Product use issue [Unknown]
  - Expired product administered [Unknown]
  - Product cleaning inadequate [Unknown]
